FAERS Safety Report 10146683 (Version 1)
Quarter: 2014Q2

REPORT INFORMATION
  Report Type: Spontaneous
  Country: US (occurrence: US)
  Receive Date: 20140501
  Receipt Date: 20140501
  Transmission Date: 20141212
  Serious: No
  Sender: FDA-Public Use
  Company Number: US-PFIZER INC-2014116591

PATIENT
  Age: 51 Year
  Sex: Female
  Weight: 89.34 kg

DRUGS (2)
  1. TOVIAZ [Suspect]
     Indication: URINARY INCONTINENCE
     Dosage: 4 MG, 1X/DAY
     Route: 048
     Dates: start: 2013
  2. CELEBREX [Concomitant]
     Dosage: UNK

REACTIONS (4)
  - Skin burning sensation [Unknown]
  - Weight increased [Unknown]
  - Impaired work ability [Unknown]
  - Blood cholesterol increased [Unknown]
